FAERS Safety Report 4804287-2 (Version None)
Quarter: 2005Q4

REPORT INFORMATION
  Report Type: 
  Country: None (occurrence: None)
  Receive Date: 20051018
  Receipt Date: 20051018
  Transmission Date: 20060501
  Serious: Yes (Hospitalization)
  Sender: FDA-Public Use
  Company Number: None

PATIENT
  Age: 82 Year
  Sex: Male
  Weight: 104.7809 kg

DRUGS (8)
  1. AMOXICILLIN/CLAVULANTE 500/125 SANDOZ [Suspect]
     Indication: OTITIS MEDIA
     Dosage: 1 TABLET PO TWICE DAILY
     Route: 048
     Dates: start: 20050630
  2. CORTISPORIN [Concomitant]
  3. FELODIPINE [Concomitant]
  4. GLYBURIDE [Concomitant]
  5. LISINOPRIL [Concomitant]
  6. SIMVASTATIN [Concomitant]
  7. NOVOLIN 70/30 [Concomitant]
  8. PRAZOSIN [Concomitant]

REACTIONS (3)
  - DIZZINESS [None]
  - HAEMATEMESIS [None]
  - VOMITING [None]
